FAERS Safety Report 16969408 (Version 2)
Quarter: 2019Q4

REPORT INFORMATION
  Report Type: Spontaneous
  Country: US (occurrence: US)
  Receive Date: 20191029
  Receipt Date: 20191126
  Transmission Date: 20200122
  Serious: Yes (Other)
  Sender: FDA-Public Use
  Company Number: US-AKORN PHARMACEUTICALS-2019AKN02175

PATIENT
  Sex: Female
  Weight: 49.89 kg

DRUGS (9)
  1. SINGULAIR [Concomitant]
     Active Substance: MONTELUKAST SODIUM
     Route: 048
  2. MYORISAN [Suspect]
     Active Substance: ISOTRETINOIN
     Indication: ACNE
     Dosage: 20 MG, 2X/DAY WITH FOOD
     Route: 048
     Dates: start: 20190530, end: 201910
  3. TRAZODONE [Concomitant]
     Active Substance: TRAZODONE HYDROCHLORIDE
     Route: 048
  4. NASONEX [Concomitant]
     Active Substance: MOMETASONE FUROATE
  5. PREDNISONE. [Concomitant]
     Active Substance: PREDNISONE
     Route: 048
  6. ELIDEL [Concomitant]
     Active Substance: PIMECROLIMUS
     Route: 061
  7. UNSPECIFIED IUD [Concomitant]
  8. ADDERALL [Concomitant]
     Active Substance: AMPHETAMINE ASPARTATE\AMPHETAMINE SULFATE\DEXTROAMPHETAMINE SACCHARATE\DEXTROAMPHETAMINE SULFATE
     Route: 048
  9. MELATONIN [Concomitant]
     Active Substance: MELATONIN

REACTIONS (4)
  - Cheilitis [Unknown]
  - Headache [Unknown]
  - Depression [Unknown]
  - Skin lesion [Unknown]

NARRATIVE: CASE EVENT DATE: 2019
